FAERS Safety Report 9819104 (Version 1)
Quarter: 2014Q1

REPORT INFORMATION
  Report Type: Spontaneous
  Country: US (occurrence: US)
  Receive Date: 20140115
  Receipt Date: 20140115
  Transmission Date: 20141002
  Serious: No
  Sender: FDA-Public Use
  Company Number: US-ENDO PHARMACEUTICALS INC.-PERC20130045

PATIENT
  Age: 72 Year
  Sex: Female

DRUGS (1)
  1. PERCOCET 5MG/325MG [Suspect]
     Indication: PAIN
     Dosage: 5/325 MG
     Route: 048
     Dates: start: 20130330, end: 20130330

REACTIONS (2)
  - Diarrhoea [Unknown]
  - Vomiting [Unknown]
